FAERS Safety Report 4436843-8 (Version None)
Quarter: 2004Q3

REPORT INFORMATION
  Report Type: 
  Country: None (occurrence: None)
  Receive Date: 20040827
  Receipt Date: 20040817
  Transmission Date: 20050211
  Serious: Yes (Life-Threatening, Hospitalization)
  Sender: FDA-Public Use
  Company Number: 04-00481

PATIENT
  Age: 39 Year
  Sex: Female

DRUGS (5)
  1. CLONIDINE HCL [Suspect]
     Dosage: 0.2MG
  2. NEFADAZONE [Concomitant]
  3. HALOPERIDOL [Concomitant]
  4. QUINNINE SULFATE [Concomitant]
  5. QUETIAPINE [Concomitant]

REACTIONS (7)
  - APNOEA [None]
  - BRADYCARDIA [None]
  - COMA [None]
  - HYPOTHERMIA [None]
  - OVERDOSE [None]
  - RESPIRATORY DEPRESSION [None]
  - SUICIDE ATTEMPT [None]
